FAERS Safety Report 7031588-2 (Version None)
Quarter: 2010Q4

REPORT INFORMATION
  Report Type: 
  Country: None (occurrence: None)
  Receive Date: 20101005
  Receipt Date: 20101005
  Transmission Date: 20110411
  Serious: Yes (Hospitalization)
  Sender: FDA-Public Use
  Company Number: None

PATIENT
  Sex: Male
  Weight: 105.8 kg

DRUGS (8)
  1. CYCLOPHOSPHAMIDE [Suspect]
     Dosage: 2280 MG
     Dates: end: 20100910
  2. CYTARABINE [Suspect]
     Dosage: 1368 MG
     Dates: end: 20100920
  3. DEXAMETHASONE [Suspect]
     Dosage: 336 MG
     Dates: end: 20100902
  4. DOXORUBICIN HYDROCHLORIDE [Suspect]
     Dosage: 142.5 MG
     Dates: end: 20100827
  5. METHOTREXATE [Suspect]
     Dosage: 45 MG
     Dates: end: 20100917
  6. PEG-L-ASPARAGINASE (K-H) [Suspect]
     Dosage: 11400 IU
     Dates: end: 20100924
  7. THIOGUANINE [Suspect]
     Dosage: 1960 MG
     Dates: end: 20100923
  8. VINCRISTINE SULFATE [Suspect]
     Dosage: 8 MG
     Dates: end: 20100924

REACTIONS (3)
  - APHASIA [None]
  - CARDIO-RESPIRATORY ARREST [None]
  - CONVULSION [None]
